FAERS Safety Report 18225483 (Version 2)
Quarter: 2021Q3

REPORT INFORMATION
  Report Type: Spontaneous
  Country: US (occurrence: US)
  Receive Date: 20200903
  Receipt Date: 20210713
  Transmission Date: 20211014
  Serious: Yes (Other)
  Sender: FDA-Public Use
  Company Number: US-SA-2020SA237875

PATIENT
  Age: 58 Year
  Sex: Female

DRUGS (1)
  1. ZANTAC [Suspect]
     Active Substance: RANITIDINE HYDROCHLORIDE
     Indication: DYSPEPSIA
     Dosage: 75 MG; FREQUENCY? OTHER
     Dates: start: 199102, end: 201809

REACTIONS (2)
  - Gastric cancer [Unknown]
  - Haematological malignancy [Unknown]

NARRATIVE: CASE EVENT DATE: 201901
